FAERS Safety Report 6765730-5 (Version None)
Quarter: 2010Q2

REPORT INFORMATION
  Report Type: 
  Country: None (occurrence: None)
  Receive Date: 20100611
  Receipt Date: 20100528
  Transmission Date: 20101027
  Serious: Yes (Hospitalization)
  Sender: FDA-Public Use
  Company Number: FR-TEVA-236387ISR

PATIENT
  Sex: Male

DRUGS (12)
  1. CARBOPLATIN [Suspect]
     Indication: HEPATIC CANCER METASTATIC
     Route: 042
     Dates: start: 20091204, end: 20100324
  2. CARBOPLATIN [Suspect]
     Indication: OESOPHAGEAL ADENOCARCINOMA
  3. CISPLATIN [Suspect]
     Indication: HEPATIC CANCER METASTATIC
     Route: 042
     Dates: start: 20090801, end: 20090901
  4. CISPLATIN [Suspect]
     Indication: OESOPHAGEAL ADENOCARCINOMA
  5. FLUOROURACIL [Suspect]
     Indication: HEPATIC CANCER METASTATIC
     Route: 042
     Dates: start: 20090801, end: 20090901
  6. FLUOROURACIL [Suspect]
     Indication: OESOPHAGEAL ADENOCARCINOMA
  7. PACLITAXEL [Suspect]
     Indication: HEPATIC CANCER METASTATIC
     Route: 042
     Dates: start: 20091204, end: 20100324
  8. PACLITAXEL [Suspect]
     Indication: OESOPHAGEAL ADENOCARCINOMA
  9. FONDAPARINUX SODIUM [Concomitant]
     Indication: PULMONARY EMBOLISM
  10. CLOZAPINE [Concomitant]
  11. PANADEINE CO [Concomitant]
  12. PHLOROGLUCINOL - TRIMETHYLPHLOROGLUCINOL [Concomitant]

REACTIONS (3)
  - RENAL FAILURE ACUTE [None]
  - RETROPERITONEAL FIBROSIS [None]
  - URETERIC DILATATION [None]
